FAERS Safety Report 5500949-2 (Version None)
Quarter: 2007Q4

REPORT INFORMATION
  Report Type: 
  Country: None (occurrence: None)
  Receive Date: 20071029
  Receipt Date: 20071016
  Transmission Date: 20080405
  Serious: Yes (Hospitalization, Other)
  Sender: FDA-Public Use
  Company Number: PHHO2007AR17116

PATIENT
  Age: 73 Year
  Sex: Female

DRUGS (2)
  1. DIOVAN [Suspect]
     Indication: HYPERTENSION
     Dosage: 80 MG, QD
     Route: 048
     Dates: start: 20071016
  2. DIOVAN [Suspect]
     Dosage: 80 MG, QD
     Route: 048
     Dates: end: 20071015

REACTIONS (5)
  - ABDOMINAL PAIN [None]
  - DIZZINESS [None]
  - GALLBLADDER DISORDER [None]
  - GALLBLADDER OPERATION [None]
  - TREATMENT NONCOMPLIANCE [None]
